FAERS Safety Report 22187488 (Version 4)
Quarter: 2023Q4

REPORT INFORMATION
  Report Type: Spontaneous
  Country: US (occurrence: US)
  Receive Date: 20230407
  Receipt Date: 20231018
  Transmission Date: 20240110
  Serious: No
  Sender: FDA-Public Use
  Company Number: US-INSUD PHARMA-2304US02070

PATIENT

DRUGS (1)
  1. SLYND [Suspect]
     Active Substance: DROSPIRENONE
     Indication: Menstrual cycle management
     Dosage: UNKNOWN
     Route: 048
     Dates: start: 202303

REACTIONS (6)
  - Heavy menstrual bleeding [Not Recovered/Not Resolved]
  - Vaginal discharge [Unknown]
  - Amenorrhoea [Recovered/Resolved]
  - Intermenstrual bleeding [Not Recovered/Not Resolved]
  - Intentional product use issue [Unknown]
  - Intentional dose omission [Unknown]

NARRATIVE: CASE EVENT DATE: 20230101
